FAERS Safety Report 8991263 (Version 1)
Quarter: 2012Q4

REPORT INFORMATION
  Report Type: Report from Study
  Country: CA (occurrence: CA)
  Receive Date: 20121231
  Receipt Date: 20121231
  Transmission Date: 20130627
  Serious: Yes (Other)
  Sender: FDA-Public Use
  Company Number: CA-ROCHE-1164724

PATIENT
  Age: 36 Year
  Sex: Female

DRUGS (2)
  1. OMALIZUMAB [Suspect]
     Indication: PRODUCT USED FOR UNKNOWN INDICATION
     Route: 065
     Dates: start: 20060330
  2. MONUROL [Interacting]
     Indication: URINARY TRACT INFECTION
     Route: 065
     Dates: start: 20061013

REACTIONS (7)
  - Drug interaction [Unknown]
  - Migraine [Unknown]
  - Swelling [Unknown]
  - Hypoaesthesia [Unknown]
  - Urinary tract infection [Unknown]
  - Arthropod sting [Unknown]
  - Headache [Unknown]
